FAERS Safety Report 4918011-6 (Version None)
Quarter: 2006Q1

REPORT INFORMATION
  Report Type: 
  Country: None (occurrence: None)
  Receive Date: 20060221
  Receipt Date: 20060215
  Transmission Date: 20060701
  Serious: Yes (Hospitalization)
  Sender: FDA-Public Use
  Company Number: AU-MERCK-0602AUS00156

PATIENT

DRUGS (5)
  1. ZETIA [Suspect]
     Route: 065
     Dates: start: 20050201
  2. PERINDOPRIL ERBUMINE [Concomitant]
     Route: 065
  3. CYPROHEPTADINE HYDROCHLORIDE [Concomitant]
     Route: 065
  4. TRAMADOL HYDROCHLORIDE [Concomitant]
     Route: 065
  5. ONDANSETRON [Concomitant]
     Route: 065

REACTIONS (3)
  - ANGIOPATHY [None]
  - BLOOD BILIRUBIN INCREASED [None]
  - LIVER FUNCTION TEST ABNORMAL [None]
